FAERS Safety Report 18485493 (Version 1)
Quarter: 2020Q4

REPORT INFORMATION
  Report Type: Spontaneous
  Country: US (occurrence: US)
  Receive Date: 20201110
  Receipt Date: 20201110
  Transmission Date: 20210114
  Serious: No
  Sender: FDA-Public Use
  Company Number: None

PATIENT
  Sex: Female
  Weight: 63 kg

DRUGS (13)
  1. GERITOL PLUS IRON [Concomitant]
  2. CYTOMEL [Concomitant]
     Active Substance: LIOTHYRONINE SODIUM
  3. VITAMIN D [Concomitant]
     Active Substance: VITAMIN D NOS
  4. CITRACAL [Suspect]
     Active Substance: CALCIUM CITRATE
  5. LAMOTRIGINE. [Concomitant]
     Active Substance: LAMOTRIGINE
  6. DESVENLAFAXINE. [Suspect]
     Active Substance: DESVENLAFAXINE
     Indication: DEPRESSION
  7. HIGH VITAMIN BUTTER OIL [Concomitant]
  8. IBUPROFEN. [Suspect]
     Active Substance: IBUPROFEN
  9. ADDERALL [Concomitant]
     Active Substance: AMPHETAMINE ASPARTATE\AMPHETAMINE SULFATE\DEXTROAMPHETAMINE SACCHARATE\DEXTROAMPHETAMINE SULFATE
  10. LUGOL [Concomitant]
     Active Substance: IODINE\POTASSIUM IODIDE
  11. ZINC. [Concomitant]
     Active Substance: ZINC
  12. SYNTHROID [Concomitant]
     Active Substance: LEVOTHYROXINE SODIUM
  13. FERMENTED COD LIVER OIL [Concomitant]

REACTIONS (2)
  - Sensation of foreign body [None]
  - Throat tightness [None]
